FAERS Safety Report 6237633-6 (Version None)
Quarter: 2009Q2

REPORT INFORMATION
  Report Type: 
  Country: None (occurrence: None)
  Receive Date: 20090619
  Receipt Date: 20090616
  Transmission Date: 20091009
  Serious: Yes (Hospitalization)
  Sender: FDA-Public Use
  Company Number: US-MERCK-0906USA01431

PATIENT
  Age: 56 Year
  Sex: Male

DRUGS (8)
  1. ZOCOR [Suspect]
     Indication: HYPERCHOLESTEROLAEMIA
     Route: 048
     Dates: start: 20020401, end: 20060101
  2. LISINOPRIL [Concomitant]
     Route: 048
  3. LOVAZA [Suspect]
     Route: 065
  4. CRESTOR [Suspect]
     Route: 065
     Dates: start: 20080601, end: 20081001
  5. CRESTOR [Suspect]
     Route: 065
     Dates: start: 20081001
  6. PLAVIX [Concomitant]
     Route: 065
  7. ASPIRIN [Concomitant]
     Route: 065
  8. VYTORIN [Concomitant]
     Route: 048
     Dates: start: 20060101, end: 20080601

REACTIONS (3)
  - CARDIAC DISORDER [None]
  - DRUG EFFECT DECREASED [None]
  - LOW DENSITY LIPOPROTEIN INCREASED [None]
